FAERS Safety Report 5795255-5 (Version None)
Quarter: 2008Q2

REPORT INFORMATION
  Report Type: 
  Country: None (occurrence: None)
  Receive Date: 20080630
  Receipt Date: 20080624
  Transmission Date: 20081010
  Serious: Yes (Other)
  Sender: FDA-Public Use
  Company Number: DK-GENENTECH-263344

PATIENT

DRUGS (4)
  1. RANIBIZUMAB [Suspect]
     Indication: MACULAR DEGENERATION
     Dates: start: 20070917
  2. RANIBIZUMAB [Suspect]
     Indication: CHOROIDAL NEOVASCULARISATION
  3. VERTEPORFIN VS. PLACEBO [Suspect]
     Indication: MACULAR DEGENERATION
     Dates: start: 20070917
  4. VERTEPORFIN VS. PLACEBO [Suspect]
     Indication: CHOROIDAL NEOVASCULARISATION

REACTIONS (2)
  - VISUAL ACUITY REDUCED [None]
  - VISUAL DISTURBANCE [None]
